FAERS Safety Report 8263277-0 (Version None)
Quarter: 2012Q2

REPORT INFORMATION
  Report Type: 
  Country: None (occurrence: None)
  Receive Date: 20120405
  Receipt Date: 20120402
  Transmission Date: 20120825
  Serious: Yes (Hospitalization, Other)
  Sender: FDA-Public Use
  Company Number: US-PFIZER INC-2012071703

PATIENT
  Sex: Male

DRUGS (8)
  1. LOPRESSOR [Concomitant]
     Dosage: UNK
  2. NEXIUM [Concomitant]
     Dosage: UNK
  3. ATIVAN [Concomitant]
     Dosage: UNK
  4. VIOXX [Suspect]
     Indication: MUSCULOSKELETAL PAIN
  5. LIPITOR [Suspect]
     Indication: BLOOD CHOLESTEROL INCREASED
     Dosage: 10 MG, 1X/DAY
     Route: 048
     Dates: start: 19970101
  6. VIOXX [Suspect]
     Indication: BACK PAIN
     Dosage: UNK
  7. VIOXX [Suspect]
     Indication: NECK PAIN
  8. LIPITOR [Suspect]
     Indication: CORONARY ARTERY DISEASE

REACTIONS (6)
  - BLOOD CHOLESTEROL INCREASED [None]
  - CEREBROVASCULAR ACCIDENT [None]
  - HYPOAESTHESIA [None]
  - MASTICATION DISORDER [None]
  - MEMORY IMPAIRMENT [None]
  - JAW DISORDER [None]
